FAERS Safety Report 8339924-1 (Version None)
Quarter: 2012Q2

REPORT INFORMATION
  Report Type: 
  Country: None (occurrence: None)
  Receive Date: 20120507
  Receipt Date: 20090129
  Transmission Date: 20120825
  Serious: No
  Sender: FDA-Public Use
  Company Number: US-TEVA-2009000188

PATIENT
  Sex: Female
  Weight: 54.026 kg

DRUGS (4)
  1. DEXAMETHASONE [Concomitant]
     Indication: PREMEDICATION
     Dates: start: 20090115
  2. TREANDA [Suspect]
     Indication: NON-HODGKIN'S LYMPHOMA
     Route: 042
     Dates: start: 20090115, end: 20090116
  3. ZOFRAN [Concomitant]
     Indication: PREMEDICATION
     Dates: start: 20090115
  4. RITUXIMAB [Concomitant]
     Indication: NON-HODGKIN'S LYMPHOMA
     Dates: start: 20090115

REACTIONS (2)
  - PYREXIA [None]
  - CHILLS [None]
